FAERS Safety Report 6288502-7 (Version None)
Quarter: 2009Q3

REPORT INFORMATION
  Report Type: 
  Country: None (occurrence: None)
  Receive Date: 20090729
  Receipt Date: 20090727
  Transmission Date: 20100115
  Serious: Yes (Hospitalization)
  Sender: FDA-Public Use
  Company Number: NL-B.I. PHARMACEUTICALS,INC./RIDGEFIELD-2009-NL-00480NL

PATIENT
  Sex: Male

DRUGS (3)
  1. MICARDIS [Suspect]
     Indication: PROTEINURIA
     Dates: start: 20081016, end: 20090417
  2. METOPROLOL SUCCINATE [Concomitant]
     Indication: ATRIAL FIBRILLATION
     Dates: start: 20040101
  3. PERINDORPIL 10MG [Concomitant]
     Indication: PROTEINURIA
     Dates: start: 20080509

REACTIONS (2)
  - MEDICATION ERROR [None]
  - RENAL FAILURE [None]
